FAERS Safety Report 7263917-9 (Version None)
Quarter: 2011Q1

REPORT INFORMATION
  Report Type: 
  Country: None (occurrence: None)
  Receive Date: 20110130
  Receipt Date: 20101208
  Transmission Date: 20110831
  Serious: No
  Sender: FDA-Public Use
  Company Number: US-ABBOTT-10P-163-0690349-00

PATIENT
  Age: 41 Year
  Sex: Male

DRUGS (1)
  1. HUMIRA [Suspect]
     Indication: PRODUCT USED FOR UNKNOWN INDICATION
     Dates: start: 20081001

REACTIONS (6)
  - DIZZINESS [None]
  - FEELING ABNORMAL [None]
  - EAR INFECTION [None]
  - FATIGUE [None]
  - INSOMNIA [None]
  - HEADACHE [None]
